FAERS Safety Report 8913334 (Version 1)
Quarter: 2012Q4

REPORT INFORMATION
  Report Type: Spontaneous
  Country: US (occurrence: None)
  Receive Date: 20121114
  Receipt Date: 20121114
  Transmission Date: 20130627
  Serious: Yes (Disabling, Other)
  Sender: FDA-Public Use
  Company Number: ACO_32755_2012

PATIENT
  Age: 52 Year
  Sex: Female
  Weight: 45.4 kg

DRUGS (13)
  1. AMPYRA (DALFAMPRIDINE) TABLET, 10MG [Suspect]
     Indication: GAIT DISTURBANCE
     Route: 048
     Dates: start: 201210, end: 201210
  2. OXYCONTIN (OXYCODONE HYDROCHLORIDE) [Concomitant]
  3. NEURONTIN (GABAPENTIN) [Concomitant]
  4. BACLOFEN [Concomitant]
  5. VITAMIN D3 (COLECALCIFEROL) [Concomitant]
  6. ACETAMINOPHEN (PARACETAMOL),ACETYLSAL ACID,CAFFEINE CITRATE [Concomitant]
  7. DULCOLAX (BISACODYL) [Concomitant]
  8. VALTREX (VALACICLOVIR HYDROCHLORIDE) [Concomitant]
  9. NUVIGIL (ARMODAFINIL) [Concomitant]
  10. CLONAZEPAM [Concomitant]
  11. FLUOXETINE (FLUOXETINE HYDROCHLORIDE) [Concomitant]
  12. TRAZODONE (TRAZODONE HYDROCHLORIDE) [Concomitant]
  13. OXYBUTYNIN (OXYBUTYNIN HYDROCHLORIDE) [Concomitant]

REACTIONS (10)
  - Dysarthria [None]
  - Activities of daily living impaired [None]
  - Cognitive disorder [None]
  - Malaise [None]
  - Lethargy [None]
  - Hypersomnia [None]
  - Flat affect [None]
  - Depression [None]
  - Muscle disorder [None]
  - Aphasia [None]
